FAERS Safety Report 8959071 (Version 2)
Quarter: 2014Q1

REPORT INFORMATION
  Report Type: Spontaneous
  Country: US (occurrence: US)
  Receive Date: 20121212
  Receipt Date: 20140107
  Transmission Date: 20141002
  Serious: Yes (Other)
  Sender: FDA-Public Use
  Company Number: US-BAYER-2012-127633

PATIENT
  Age: 27 Year
  Sex: Female

DRUGS (5)
  1. YAZ [Suspect]
     Indication: CONTRACEPTION
  2. YASMIN [Suspect]
     Indication: CONTRACEPTION
  3. OCELLA [Suspect]
     Indication: CONTRACEPTION
  4. VICODIN [Concomitant]
     Dosage: UNK
     Dates: start: 20070524
  5. ZYRTEC [Concomitant]
     Dosage: PNR
     Dates: start: 20070629

REACTIONS (9)
  - Cholelithiasis [None]
  - Gallbladder disorder [None]
  - Cholecystitis chronic [None]
  - Emotional distress [None]
  - Pain [None]
  - Fear of disease [None]
  - Injury [None]
  - Anxiety [None]
  - Pain [None]
